FAERS Safety Report 4698830-4 (Version None)
Quarter: 2005Q2

REPORT INFORMATION
  Report Type: 
  Country: None (occurrence: None)
  Receive Date: 20050623
  Receipt Date: 20050621
  Transmission Date: 20051028
  Serious: Yes (Death, Hospitalization)
  Sender: FDA-Public Use
  Company Number: 05-05-0833

PATIENT
  Age: 71 Year
  Sex: Male

DRUGS (11)
  1. CLOZAPINE [Suspect]
     Indication: DEMENTIA
     Dosage: 75MG QHS ORAL
     Route: 048
     Dates: start: 20050101, end: 20050401
  2. CLOZAPINE [Suspect]
     Indication: PARKINSON'S DISEASE
     Dosage: 75MG QHS ORAL
     Route: 048
     Dates: start: 20050101, end: 20050401
  3. NAMENDA [Concomitant]
  4. ARICEPT [Concomitant]
  5. ASPIRIN [Concomitant]
  6. FOSAMAX [Concomitant]
  7. AMBIEN [Concomitant]
  8. COGENTIN [Concomitant]
  9. HALDOL [Concomitant]
  10. HEPARIN [Concomitant]
  11. FLAGYL [Concomitant]

REACTIONS (2)
  - PNEUMONIA ASPIRATION [None]
  - SEPSIS [None]
